FAERS Safety Report 12168385 (Version 1)
Quarter: 2016Q1

REPORT INFORMATION
  Report Type: Spontaneous
  Country: US (occurrence: None)
  Receive Date: 20160309
  Receipt Date: 20160309
  Transmission Date: 20160526
  Serious: Yes (Hospitalization, Other)
  Sender: FDA-Public Use
  Company Number: None

PATIENT
  Age: 32 Year
  Sex: Female

DRUGS (1)
  1. PARAGARD T 380A [Suspect]
     Active Substance: COPPER

REACTIONS (5)
  - Device dislocation [None]
  - Device issue [None]
  - Peritonitis [None]
  - Large intestine perforation [None]
  - Device malfunction [None]

NARRATIVE: CASE EVENT DATE: 20160210
